FAERS Safety Report 10437625 (Version 1)
Quarter: 2014Q3

REPORT INFORMATION
  Report Type: Spontaneous
  Country: US (occurrence: US)
  Receive Date: 20140908
  Receipt Date: 20140908
  Transmission Date: 20150326
  Serious: Yes (Hospitalization, Other)
  Sender: FDA-Public Use
  Company Number: US-TEVA-506462USA

PATIENT
  Sex: Male

DRUGS (1)
  1. CISPLATIN. [Suspect]
     Active Substance: CISPLATIN
     Indication: TESTIS CANCER
     Dosage: 400 MG/M2
     Route: 065

REACTIONS (8)
  - Renal failure acute [Unknown]
  - Liver injury [Unknown]
  - Respiratory failure [Unknown]
  - Incorrect dose administered [Recovering/Resolving]
  - Overdose [Recovering/Resolving]
  - Toxicity to various agents [Recovering/Resolving]
  - Deafness [Not Recovered/Not Resolved]
  - Immunosuppression [Unknown]
